FAERS Safety Report 4415799-8 (Version None)
Quarter: 2004Q2

REPORT INFORMATION
  Report Type: 
  Country: None (occurrence: None)
  Receive Date: 20040621
  Receipt Date: 20040312
  Transmission Date: 20050107
  Serious: Yes (Other)
  Sender: FDA-Public Use
  Company Number: A-US2004-05445

PATIENT
  Age: 79 Year
  Sex: Female

DRUGS (12)
  1. TRACLEER [Suspect]
     Indication: PULMONARY HYPERTENSION
     Dosage: 62.5 MG, BID, ORAL
     Route: 048
     Dates: start: 20031125, end: 20031201
  2. TRACLEER [Suspect]
     Dosage: 125 MG, BID, ORAL
     Route: 048
     Dates: start: 20031201
  3. FOSAMAX [Concomitant]
  4. ALLOPURINOL [Concomitant]
  5. PRINIVIL [Concomitant]
  6. NEXIUM [Concomitant]
  7. ASPIRIN ^BAYRE^ (ACETYLSALICYLIC ACID) [Concomitant]
  8. COUMADIN [Concomitant]
  9. PEPCID AC [Concomitant]
  10. CALCIUM (CALCIUM) [Concomitant]
  11. VITAMIN D [Concomitant]
  12. GLUCOSAMINE (GLUCOSAMINE) [Concomitant]

REACTIONS (5)
  - ALANINE AMINOTRANSFERASE INCREASED [None]
  - ASPARTATE AMINOTRANSFERASE INCREASED [None]
  - BLOOD ALKALINE PHOSPHATASE INCREASED [None]
  - GAMMA-GLUTAMYLTRANSFERASE INCREASED [None]
  - LIVER FUNCTION TEST ABNORMAL [None]
